FAERS Safety Report 11252985 (Version 1)
Quarter: 2015Q3

REPORT INFORMATION
  Report Type: Report from Study
  Country: US (occurrence: US)
  Receive Date: 20150708
  Receipt Date: 20150708
  Transmission Date: 20151125
  Serious: Yes (Hospitalization, Other)
  Sender: FDA-Public Use
  Company Number: US-ABBVIE-15P-163-1418498-00

PATIENT
  Age: 59 Year
  Sex: Male
  Weight: 156.63 kg

DRUGS (2)
  1. ANDROGEL [Suspect]
     Active Substance: TESTOSTERONE
     Indication: HYPOGONADISM
     Route: 061
     Dates: start: 2000, end: 2012
  2. ANDROGEL [Suspect]
     Active Substance: TESTOSTERONE
     Indication: HYPOGONADISM
     Route: 061
     Dates: start: 2012

REACTIONS (7)
  - Abdominal pain [Recovering/Resolving]
  - Irritable bowel syndrome [Not Recovered/Not Resolved]
  - Carcinoid syndrome [Recovering/Resolving]
  - Hepatic neoplasm [Recovering/Resolving]
  - Depression [Recovering/Resolving]
  - Gastrointestinal neoplasm [Recovering/Resolving]
  - Abdominal pain [Recovered/Resolved]

NARRATIVE: CASE EVENT DATE: 2002
